FAERS Safety Report 18957024 (Version 19)
Quarter: 2023Q2

REPORT INFORMATION
  Report Type: Other
  Country: AT (occurrence: None)
  Receive Date: 20210302
  Receipt Date: 20230502
  Transmission Date: 20230721
  Serious: Yes (Hospitalization)
  Sender: FDA-Public Use
  Company Number: AT-ROCHE-2771980

PATIENT
  Age: 54 Year
  Sex: Female
  Weight: 98.8 kg

DRUGS (53)
  1. ATEZOLIZUMAB [Suspect]
     Active Substance: ATEZOLIZUMAB
     Indication: Small cell lung cancer extensive stage
     Dosage: START AND END DATE OF MOST RECENT DOSE OF STUDY DRUG PRIOR TO AE 26/JAN/2021
     Route: 041
     Dates: start: 20210105
  2. ATEZOLIZUMAB [Suspect]
     Active Substance: ATEZOLIZUMAB
     Route: 042
     Dates: start: 20201211
  3. CARBOPLATIN [Suspect]
     Active Substance: CARBOPLATIN
     Indication: Small cell lung cancer extensive stage
     Route: 065
     Dates: start: 20210105
  4. ETOPOSIDE [Suspect]
     Active Substance: ETOPOSIDE
     Indication: Small cell lung cancer extensive stage
     Route: 042
     Dates: start: 20210105
  5. ETOPOSIDE [Suspect]
     Active Substance: ETOPOSIDE
     Route: 042
     Dates: start: 20201211
  6. LANSOBENE [Concomitant]
     Dates: start: 200509
  7. CARVEDILOL [Concomitant]
     Active Substance: CARVEDILOL
     Dates: start: 200905
  8. AMLODIPINE [Concomitant]
     Active Substance: AMLODIPINE BESYLATE
     Dates: start: 200911
  9. SPIRIVA [Concomitant]
     Active Substance: TIOTROPIUM BROMIDE MONOHYDRATE
     Dates: start: 20201203
  10. JANUMET [Concomitant]
     Active Substance: METFORMIN HYDROCHLORIDE\SITAGLIPTIN PHOSPHATE
     Dates: start: 201706
  11. TEGRETOL [Concomitant]
     Active Substance: CARBAMAZEPINE
     Dates: start: 202011
  12. EDOXABAN TOSYLATE [Concomitant]
     Active Substance: EDOXABAN TOSYLATE
     Dates: start: 202007, end: 20210126
  13. EDOXABAN TOSYLATE [Concomitant]
     Active Substance: EDOXABAN TOSYLATE
     Dates: start: 20210129
  14. GABAPENTIN [Concomitant]
     Active Substance: GABAPENTIN
     Dates: start: 201809
  15. NOVALGIN (AUSTRIA) [Concomitant]
     Dates: start: 202012
  16. ONDANSETRON [Concomitant]
     Active Substance: ONDANSETRON
     Dates: start: 20210126, end: 20210128
  17. ONDANSETRON [Concomitant]
     Active Substance: ONDANSETRON
     Dates: start: 20210129, end: 20210202
  18. ONDANSETRON [Concomitant]
     Active Substance: ONDANSETRON
     Dates: start: 20210224, end: 20210226
  19. ONDANSETRON [Concomitant]
     Active Substance: ONDANSETRON
     Dates: start: 20210227, end: 20210303
  20. ONDANSETRON [Concomitant]
     Active Substance: ONDANSETRON
     Dates: start: 20210317, end: 20210324
  21. ONDANSETRON [Concomitant]
     Active Substance: ONDANSETRON
     Dates: start: 20210320
  22. ONDANSETRON [Concomitant]
     Active Substance: ONDANSETRON
     Dates: start: 20210326
  23. ONDANSETRON [Concomitant]
     Active Substance: ONDANSETRON
     Dates: start: 20210105, end: 20210107
  24. ONDANSETRON [Concomitant]
     Active Substance: ONDANSETRON
     Dates: start: 20210108, end: 20210112
  25. ONDANSETRON [Concomitant]
     Active Substance: ONDANSETRON
     Dates: start: 20210317, end: 20210324
  26. ONDANSETRON [Concomitant]
     Active Substance: ONDANSETRON
     Dates: start: 20210326
  27. DEXAMETHASONE [Concomitant]
     Active Substance: DEXAMETHASONE
     Dates: start: 20210126, end: 20210128
  28. DEXAMETHASONE [Concomitant]
     Active Substance: DEXAMETHASONE
     Dates: start: 20210224, end: 20210226
  29. DEXAMETHASONE [Concomitant]
     Active Substance: DEXAMETHASONE
     Dates: start: 20210317, end: 20210319
  30. DEXAMETHASONE [Concomitant]
     Active Substance: DEXAMETHASONE
     Dates: start: 20210105, end: 20210107
  31. DEXAMETHASONE [Concomitant]
     Active Substance: DEXAMETHASONE
     Dates: start: 20210218, end: 20210220
  32. DEXAMETHASONE [Concomitant]
     Active Substance: DEXAMETHASONE
     Dates: start: 20210221, end: 20210223
  33. ARANESP [Concomitant]
     Active Substance: DARBEPOETIN ALFA
     Dates: start: 20210215, end: 20210215
  34. ARANESP [Concomitant]
     Active Substance: DARBEPOETIN ALFA
     Dates: start: 20210319, end: 20210319
  35. DEXABENE [Concomitant]
     Indication: Parotitis
     Dates: start: 20210217, end: 20210218
  36. DEXABENE [Concomitant]
     Dates: start: 20210222, end: 20210223
  37. XGEVA [Concomitant]
     Active Substance: DENOSUMAB
     Dates: start: 20210226, end: 20210226
  38. XGEVA [Concomitant]
     Active Substance: DENOSUMAB
     Dates: start: 20210319, end: 20210319
  39. NEULASTA [Concomitant]
     Active Substance: PEGFILGRASTIM
     Dates: start: 20210227, end: 20210227
  40. NEULASTA [Concomitant]
     Active Substance: PEGFILGRASTIM
     Dates: start: 20210320, end: 20210320
  41. POLYETHYLENE GLYCOL 3350\POTASSIUM CHLORIDE\SODIUM BICARBONATE\SODIUM [Concomitant]
     Active Substance: POLYETHYLENE GLYCOL 3350\POTASSIUM CHLORIDE\SODIUM BICARBONATE\SODIUM CHLORIDE
     Dates: start: 20210319
  42. ASCORBIC ACID\CALCIUM PHOSPHATE\CHOLECALCIFEROL\CITRIC ACID MONOHYDRAT [Concomitant]
     Active Substance: ASCORBIC ACID\CALCIUM PHOSPHATE\CHOLECALCIFEROL\CITRIC ACID MONOHYDRATE
     Dates: start: 20210224
  43. PFIZER-BIONTECH COVID-19 VACCINE [Concomitant]
     Active Substance: TOZINAMERAN
     Dosage: BIONTECH/PFIZER
     Dates: start: 20210327, end: 20210327
  44. HYDROMORPHONE HYDROCHLORIDE [Concomitant]
     Active Substance: HYDROMORPHONE HYDROCHLORIDE
     Dosage: RET. 2MG
     Dates: start: 20210317
  45. HYDROMORPHONE HYDROCHLORIDE [Concomitant]
     Active Substance: HYDROMORPHONE HYDROCHLORIDE
     Dosage: 1.3 MG
     Dates: start: 20210319
  46. CHOLECALCIFEROL [Concomitant]
     Active Substance: CHOLECALCIFEROL
     Indication: Prophylaxis
     Dates: start: 20210225
  47. EPIRUBICIN [Concomitant]
     Active Substance: EPIRUBICIN
     Dates: start: 20210713, end: 20210914
  48. CYCLOPHOSPHAMIDE [Concomitant]
     Active Substance: CYCLOPHOSPHAMIDE
     Dates: start: 20210713, end: 20210915
  49. VINCRISTINE [Concomitant]
     Active Substance: VINCRISTINE
     Dates: start: 20210713, end: 20210914
  50. ETOPOSIDE [Concomitant]
     Active Substance: ETOPOSIDE
     Dates: start: 20211210
  51. CARBOPLATIN [Concomitant]
     Active Substance: CARBOPLATIN
     Dates: start: 20211210, end: 20211210
  52. ATEZOLIZUMAB [Concomitant]
     Active Substance: ATEZOLIZUMAB
     Route: 065
  53. EXCIPIAL (AUSTRIA) [Concomitant]
     Dates: start: 20210105, end: 20210223

REACTIONS (6)
  - Parotitis [Not Recovered/Not Resolved]
  - Pyrexia [Recovered/Resolved]
  - Platelet count decreased [Recovered/Resolved]
  - Anaemia [Not Recovered/Not Resolved]
  - Chest pain [Not Recovered/Not Resolved]
  - Fatigue [Not Recovered/Not Resolved]

NARRATIVE: CASE EVENT DATE: 20201214
